FAERS Safety Report 14594657 (Version 3)
Quarter: 2018Q2

REPORT INFORMATION
  Report Type: Report from Study
  Country: US (occurrence: US)
  Receive Date: 20180302
  Receipt Date: 20180420
  Transmission Date: 20180711
  Serious: Yes (Hospitalization)
  Sender: FDA-Public Use
  Company Number: US-ACTELION-A-NJ2017-156438

PATIENT
  Age: 75 Year
  Sex: Female

DRUGS (23)
  1. OPSUMIT [Suspect]
     Active Substance: MACITENTAN
     Indication: PULMONARY HYPERTENSION
     Dosage: 10 MG, QD
     Route: 048
     Dates: start: 20170614
  2. POTASSIUM CHLORIDE. [Concomitant]
     Active Substance: POTASSIUM CHLORIDE
     Dosage: 10 MEQ, UNK
  3. DYMISTIN [Concomitant]
  4. LEVOFLOXACIN. [Concomitant]
     Active Substance: LEVOFLOXACIN
  5. LASIX [Concomitant]
     Active Substance: FUROSEMIDE
     Dosage: 20 MG, QD
  6. TRAMADOL. [Concomitant]
     Active Substance: TRAMADOL
     Dosage: 50 MG, UNK
  7. METOPROLOL TARTRATE. [Concomitant]
     Active Substance: METOPROLOL TARTRATE
     Dosage: 50 MG, QD
  8. ADEMPAS [Suspect]
     Active Substance: RIOCIGUAT
     Indication: PRODUCT USED FOR UNKNOWN INDICATION
     Route: 065
  9. AMOXICILLIN. [Concomitant]
     Active Substance: AMOXICILLIN
  10. BENZONATATE. [Concomitant]
     Active Substance: BENZONATATE
  11. ZOLOFT [Concomitant]
     Active Substance: SERTRALINE HYDROCHLORIDE
     Dosage: UNK
  12. DOCUSATE SODIUM. [Concomitant]
     Active Substance: DOCUSATE SODIUM
     Dosage: 100 MG, QD
  13. FLAXSEED [Concomitant]
     Active Substance: FLAX SEED
     Dosage: 1200 MG, UNK
  14. HYDRALAZINE [Concomitant]
     Active Substance: HYDRALAZINE HYDROCHLORIDE
  15. OPSUMIT [Suspect]
     Active Substance: MACITENTAN
     Dosage: 10 MG, QD
     Route: 048
  16. VITAMINS NOS [Concomitant]
     Active Substance: VITAMINS
     Dosage: UNK, QD
  17. CALCIUM + VITAMIN D [Concomitant]
     Active Substance: CALCIUM\VITAMIN D
  18. OMEPRAZOLE. [Concomitant]
     Active Substance: OMEPRAZOLE
     Dosage: 40 MG, QD
  19. NITROSTAT [Concomitant]
     Active Substance: NITROGLYCERIN
     Dosage: 0.4 MG, UNK
  20. MAGNESIUM [Concomitant]
     Active Substance: MAGNESIUM
     Dosage: 400 MG, BID
  21. RED YEAST RICE WITH PLANT STEROLS [Concomitant]
     Dosage: 1200 MG, BID
  22. RAMIPRIL. [Concomitant]
     Active Substance: RAMIPRIL
  23. PROCTOSOL HC [Concomitant]

REACTIONS (20)
  - Swelling [Recovered/Resolved]
  - Atrial fibrillation [Recovered/Resolved]
  - Dyspnoea [Recovered/Resolved]
  - Drug intolerance [Unknown]
  - Cough [Recovered/Resolved]
  - Peripheral swelling [Not Recovered/Not Resolved]
  - Muscle spasms [Unknown]
  - Macular degeneration [Not Recovered/Not Resolved]
  - Drug dose omission [Unknown]
  - Palpitations [Recovered/Resolved]
  - Cardiac failure congestive [Recovering/Resolving]
  - Wheezing [Recovered/Resolved]
  - Condition aggravated [Recovering/Resolving]
  - Sinus disorder [Not Recovered/Not Resolved]
  - Hypertension [Unknown]
  - Ear infection [Unknown]
  - Blood pressure decreased [Not Recovered/Not Resolved]
  - Ear discomfort [Not Recovered/Not Resolved]
  - Arthropod bite [Unknown]
  - Dizziness [Unknown]

NARRATIVE: CASE EVENT DATE: 201706
